FAERS Safety Report 8219802-9 (Version None)
Quarter: 2012Q1

REPORT INFORMATION
  Report Type: 
  Country: None (occurrence: None)
  Receive Date: 20120319
  Receipt Date: 20120316
  Transmission Date: 20120608
  Serious: Yes (Hospitalization)
  Sender: FDA-Public Use
  Company Number: IT-ABBOTT-12P-083-0909130-00

PATIENT
  Sex: Male
  Weight: 12.4 kg

DRUGS (8)
  1. CLARITHROMYCIN [Suspect]
     Indication: OTITIS MEDIA
     Route: 048
     Dates: start: 20120127, end: 20120128
  2. BETAMETHASONE SODIUM PHOSPHATE [Concomitant]
     Indication: PRODUCT USED FOR UNKNOWN INDICATION
  3. ANTIBIOTIC [Concomitant]
     Indication: PRODUCT USED FOR UNKNOWN INDICATION
  4. AMOXICILLIN TRIHYDRATE [Suspect]
     Indication: OTITIS MEDIA
     Route: 048
     Dates: start: 20120124, end: 20120127
  5. TINSET [Concomitant]
     Indication: PRODUCT USED FOR UNKNOWN INDICATION
     Route: 048
     Dates: start: 20120127, end: 20120128
  6. BETAMETHASONE [Concomitant]
     Indication: PRODUCT USED FOR UNKNOWN INDICATION
  7. ALBUTEROL [Concomitant]
     Indication: PRODUCT USED FOR UNKNOWN INDICATION
  8. ALBUTEROL SULFATE [Concomitant]
     Indication: PRODUCT USED FOR UNKNOWN INDICATION
     Dates: start: 20120127, end: 20120128

REACTIONS (6)
  - ERYTHEMA [None]
  - SIALOADENITIS [None]
  - PRURITUS GENERALISED [None]
  - ECCHYMOSIS [None]
  - OEDEMA PERIPHERAL [None]
  - LYMPHADENOPATHY [None]
